FAERS Safety Report 6023735-6 (Version None)
Quarter: 2008Q4

REPORT INFORMATION
  Report Type: 
  Country: None (occurrence: None)
  Receive Date: 20081223
  Receipt Date: 20081208
  Transmission Date: 20090506
  Serious: Yes (Hospitalization)
  Sender: FDA-Public Use
  Company Number: 2008001832

PATIENT
  Age: 66 Year
  Sex: Male

DRUGS (18)
  1. ERLOTINIB (ERLOTINIB) (TABLET) (ERLOTINIB) [Suspect]
     Indication: LUNG ADENOCARCINOMA
     Dosage: (150 MG, QD), ORAL
     Route: 048
     Dates: start: 20080602, end: 20080710
  2. METHYCOBAL (MECOBALAMIN) [Concomitant]
  3. GASTER D [Concomitant]
  4. MAGMITT [Concomitant]
  5. RHYTHMY (RILMAZAFONE) [Concomitant]
  6. DIAZEPAM [Concomitant]
  7. AMITRIPTYLINE HCL [Concomitant]
  8. KOLANTYL (KOLANTYL) [Concomitant]
  9. LOXONIN (LOXOPROFEN SODIUM) [Concomitant]
  10. ISODINE (POVIDONE-IODINE) [Concomitant]
  11. FLOMOX (CEFCAPENE PIVOXIL HYDROCHLORIDE) [Concomitant]
  12. LECICARBON (LECICARBON) [Concomitant]
  13. VOLTAREN [Concomitant]
  14. OPALMON (LIMAPROST) [Concomitant]
  15. PELTAZON (PENTAZOCINE) [Concomitant]
  16. PENTAZOCINE LACTATE [Concomitant]
  17. ATARAX [Concomitant]
  18. TEGRETOL [Concomitant]

REACTIONS (4)
  - BACK PAIN [None]
  - HYPONATRAEMIA [None]
  - INTESTINAL OBSTRUCTION [None]
  - METASTASES TO ADRENALS [None]
